FAERS Safety Report 6997182-4 (Version None)
Quarter: 2010Q3

REPORT INFORMATION
  Report Type: 
  Country: None (occurrence: None)
  Receive Date: 20100918
  Receipt Date: 20090914
  Transmission Date: 20110219
  Serious: No
  Sender: FDA-Public Use
  Company Number: US-WYE-H10998709

PATIENT
  Sex: Female
  Weight: 113.95 kg

DRUGS (3)
  1. EFFEXOR XR [Suspect]
     Indication: DEPRESSION
     Dosage: 150 MG ONE TIME PER 1 DAY FROM UNKNOWN TO 03-SEP-2009, THEN RESUMED ON 13-SEP-2009 TO UNKNOWN
     Route: 048
  2. EFFEXOR [Suspect]
     Route: 048
     Dates: start: 20090907, end: 20090910
  3. AMBIEN [Concomitant]

REACTIONS (5)
  - DRUG WITHDRAWAL SYNDROME [None]
  - FEELING ABNORMAL [None]
  - HYPERHIDROSIS [None]
  - INAPPROPRIATE SCHEDULE OF DRUG ADMINISTRATION [None]
  - PERIPHERAL COLDNESS [None]
